FAERS Safety Report 13407136 (Version 1)
Quarter: 2017Q2

REPORT INFORMATION
  Report Type: Spontaneous
  Country: US (occurrence: US)
  Receive Date: 20170405
  Receipt Date: 20170405
  Transmission Date: 20170830
  Serious: No
  Sender: FDA-Public Use
  Company Number: US-EAGLE PHARMACEUTICALS, INC.-US-2017EAG000022

PATIENT
  Sex: Female

DRUGS (2)
  1. RITUXAN [Concomitant]
     Active Substance: RITUXIMAB
     Indication: PRODUCT USED FOR UNKNOWN INDICATION
     Dosage: UNK
  2. BENDEKA [Suspect]
     Active Substance: BENDAMUSTINE HYDROCHLORIDE
     Indication: NEOPLASM MALIGNANT
     Dosage: UNK
     Dates: start: 2017, end: 2017

REACTIONS (1)
  - Infusion site hypoaesthesia [Recovered/Resolved]

NARRATIVE: CASE EVENT DATE: 2017
